FAERS Safety Report 20199967 (Version 3)
Quarter: 2022Q1

REPORT INFORMATION
  Report Type: Report from Study
  Country: US (occurrence: US)
  Receive Date: 20211217
  Receipt Date: 20220106
  Transmission Date: 20220424
  Serious: Yes (Hospitalization, Other)
  Sender: FDA-Public Use
  Company Number: US-BAYER-2021A269477

PATIENT
  Age: 48 Year
  Sex: Female
  Weight: 45.896 kg

DRUGS (3)
  1. ADEMPAS [Suspect]
     Active Substance: RIOCIGUAT
     Indication: Pulmonary arterial hypertension
     Dosage: UNK
     Dates: start: 20190711
  2. ADEMPAS [Suspect]
     Active Substance: RIOCIGUAT
     Indication: Pulmonary arterial hypertension
     Dosage: 2.5 MG, TID
     Route: 048
  3. LETAIRIS [Concomitant]
     Active Substance: AMBRISENTAN

REACTIONS (13)
  - Hospitalisation [None]
  - Oxygen saturation decreased [None]
  - Mobility decreased [None]
  - Heart rate increased [None]
  - Malaise [None]
  - Feeling hot [None]
  - Asthenia [None]
  - Fatigue [None]
  - Palpitations [None]
  - Tachycardia [None]
  - Myalgia [None]
  - Product dose omission issue [None]
  - Hypotension [None]
